FAERS Safety Report 22096084 (Version 6)
Quarter: 2023Q2

REPORT INFORMATION
  Report Type: Report from Study
  Country: US (occurrence: US)
  Receive Date: 20230315
  Receipt Date: 20230622
  Transmission Date: 20230721
  Serious: Yes (Hospitalization)
  Sender: FDA-Public Use
  Company Number: US-ABBVIE-4328571

PATIENT
  Sex: Male

DRUGS (2)
  1. VENCLEXTA [Suspect]
     Active Substance: VENETOCLAX
     Indication: Chronic lymphocytic leukaemia
     Dosage: 4 TABLETS BY MOUTH ONCE FOOD DAILY WITH D AND A FULL GLASS OF WATER, FORM STRENGTH: 100 MILLIGRAM
     Route: 048
  2. VENCLEXTA [Suspect]
     Active Substance: VENETOCLAX
     Indication: Chronic lymphocytic leukaemia
     Dosage: TAKE 2 TABLETS BY MOUTH ONCE DAILY WITH FOOD AND A FULL GLASS OF WATER
     Route: 048

REACTIONS (14)
  - Abscess jaw [Unknown]
  - White blood cell count decreased [Unknown]
  - Laboratory test abnormal [Unknown]
  - Neutrophil count decreased [Unknown]
  - Diarrhoea [Unknown]
  - Gingivitis [Recovering/Resolving]
  - Nausea [Unknown]
  - Neutrophil count abnormal [Recovering/Resolving]
  - Myalgia [Not Recovered/Not Resolved]
  - Localised infection [Recovering/Resolving]
  - Infection [Recovering/Resolving]
  - Productive cough [Unknown]
  - Pain in extremity [Unknown]
  - Confusional state [Unknown]

NARRATIVE: CASE EVENT DATE: 20230101
